FAERS Safety Report 12929141 (Version 1)
Quarter: 2016Q4

REPORT INFORMATION
  Report Type: Not Available
  Country: None (occurrence: US)
  Receive Date: 20161110
  Receipt Date: 20161110
  Transmission Date: 20170207
  Serious: No
  Sender: FDA-Public Use
  Company Number: US-AKORN-33234

PATIENT
  Age: 9 Year
  Sex: Male
  Weight: 53 kg

DRUGS (1)
  1. PREDNISOLONE ORAL SOLUTION,USP [Suspect]
     Active Substance: PREDNISOLONE

REACTIONS (1)
  - Vomiting [Recovered/Resolved]
